FAERS Safety Report 7413646-3 (Version None)
Quarter: 2011Q2

REPORT INFORMATION
  Report Type: 
  Country: None (occurrence: None)
  Receive Date: 20110413
  Receipt Date: 20110404
  Transmission Date: 20111010
  Serious: Yes (Other)
  Sender: FDA-Public Use
  Company Number: CA-BAXTER-2011BH008949

PATIENT
  Sex: Male

DRUGS (2)
  1. FLUOROURACIL [Suspect]
     Indication: PRODUCT USED FOR UNKNOWN INDICATION
     Route: 042
  2. DEXTROSE 5% [Suspect]
     Indication: MEDICATION DILUTION
     Route: 042

REACTIONS (2)
  - PERICARDITIS [None]
  - INCORRECT DRUG ADMINISTRATION RATE [None]
